FAERS Safety Report 8637748 (Version 2)
Quarter: 2012Q4

REPORT INFORMATION
  Report Type: 
  Country: US (occurrence: US)
  Receive Date: 20120627
  Receipt Date: 20121112
  Transmission Date: 20130627
  Serious: Yes (Hospitalization, Other)
  Sender: FDA-Public Use
  Company Number: US-BAYER-2012-062620

PATIENT
  Age: 22 Year
  Sex: Female
  Weight: 52.15 kg

DRUGS (6)
  1. YAZ [Suspect]
     Indication: CONTRACEPTION
     Dosage: UNK
     Dates: start: 20080228, end: 200806
  2. YAZ [Suspect]
     Indication: MENSTRUAL CYCLE MANAGEMENT
     Dosage: UNK
     Dates: start: 20091016, end: 201012
  3. ALEVE [Concomitant]
     Indication: KNEE PAIN
     Dosage: UNK UNK, PRN
     Route: 048
  4. CLARITIN [Concomitant]
     Indication: MULTIPLE ALLERGIES
     Dosage: 1 daily as needed
     Route: 048
  5. ALLEGRA-D [FEXOFENADINE,PSEUDOEPHEDRINE HYDROCHLORIDE] [Concomitant]
     Dosage: UNK
     Route: 048
     Dates: start: 20101118
  6. RANITIDINE [Concomitant]
     Dosage: UNK
     Route: 048
     Dates: start: 20101118

REACTIONS (8)
  - Gallbladder injury [None]
  - Biliary dyskinesia [None]
  - Injury [None]
  - Pain [None]
  - Abdominal pain [None]
  - Abdominal distension [None]
  - Vomiting [None]
  - Diarrhoea [None]
